FAERS Safety Report 5690301-1 (Version None)
Quarter: 2008Q2

REPORT INFORMATION
  Report Type: 
  Country: None (occurrence: None)
  Receive Date: 20080401
  Receipt Date: 20080319
  Transmission Date: 20081010
  Serious: Yes (Death, Hospitalization)
  Sender: FDA-Public Use
  Company Number: DE-AMGEN-UK271224

PATIENT
  Sex: Female
  Weight: 70 kg

DRUGS (3)
  1. NEULASTA [Suspect]
     Indication: CHEMOTHERAPY
     Route: 058
     Dates: start: 20080314, end: 20080314
  2. CARBOPLATIN [Concomitant]
     Route: 065
     Dates: start: 20080313
  3. TAXOL [Concomitant]
     Route: 065
     Dates: start: 20080313

REACTIONS (3)
  - DEATH [None]
  - DYSPNOEA [None]
  - MYALGIA [None]
